FAERS Safety Report 23961897 (Version 1)
Quarter: 2024Q2

REPORT INFORMATION
  Report Type: Spontaneous
  Country: US (occurrence: US)
  Receive Date: 20240611
  Receipt Date: 20240611
  Transmission Date: 20240715
  Serious: No
  Sender: FDA-Public Use
  Company Number: US-PFIZER INC-202400188130

PATIENT
  Age: 21 Year
  Sex: Female
  Weight: 70.31 kg

DRUGS (2)
  1. DEPO-PROVERA [Suspect]
     Active Substance: MEDROXYPROGESTERONE ACETATE
     Indication: Menstrual cycle management
     Dosage: 104 MG EVERY 12 WEEKS (ADMINISTERED INTO THE THIGH)
  2. ALBUTEROL [Concomitant]
     Active Substance: ALBUTEROL
     Indication: Asthma
     Dosage: UNK

REACTIONS (3)
  - Device occlusion [Unknown]
  - Product administration error [Unknown]
  - Off label use [Unknown]
